APPROVED DRUG PRODUCT: BROMFED-DM
Active Ingredient: BROMPHENIRAMINE MALEATE; DEXTROMETHORPHAN HYDROBROMIDE; PSEUDOEPHEDRINE HYDROCHLORIDE
Strength: 2MG/5ML;10MG/5ML;30MG/5ML
Dosage Form/Route: SYRUP;ORAL
Application: A089681 | Product #001
Applicant: WOCKHARDT EU OPERATIONS (SWISS) AG
Approved: Dec 22, 1988 | RLD: No | RS: No | Type: DISCN